FAERS Safety Report 6792012-8 (Version None)
Quarter: 2010Q2

REPORT INFORMATION
  Report Type: 
  Country: None (occurrence: None)
  Receive Date: 20100624
  Receipt Date: 20080717
  Transmission Date: 20101027
  Serious: Yes (Other)
  Sender: FDA-Public Use
  Company Number: US-PFIZER INC-2008060113

PATIENT
  Sex: Female
  Weight: 79 kg

DRUGS (3)
  1. DEPO-PROVERA SUSPENSION/INJ [Suspect]
     Indication: CONTRACEPTION
     Dosage: FIRST INJECTION, EVERY 3 MONTHS
     Route: 030
     Dates: start: 20070301, end: 20071001
  2. DEPO-PROVERA SUSPENSION/INJ [Suspect]
     Dosage: LAST INJECTION
     Route: 030
     Dates: start: 20071001, end: 20071001
  3. LEVOTHYROXINE [Concomitant]

REACTIONS (1)
  - WEIGHT INCREASED [None]
